FAERS Safety Report 8605405-0 (Version None)
Quarter: 2012Q3

REPORT INFORMATION
  Report Type: 
  Country: None (occurrence: None)
  Receive Date: 20120820
  Receipt Date: 20120816
  Transmission Date: 20120928
  Serious: Yes (Death, Hospitalization)
  Sender: FDA-Public Use
  Company Number: BR-NOVOPROD-346675

PATIENT
  Age: 59 Year
  Sex: Female
  Weight: 71 kg

DRUGS (10)
  1. BROMAZEPAM [Concomitant]
     Dosage: 3 MG, QD
  2. METFORMIN HCL [Concomitant]
     Dosage: 500 MG, UNK
     Route: 048
  3. AMARYL [Concomitant]
     Dosage: 2 MG, BID
     Route: 048
  4. LEVOTHYROXINE SODIUM [Concomitant]
     Dosage: 50 MCG, QD
  5. AMITRIPTYLINE HCL [Concomitant]
     Dosage: 25 MG, BID
  6. DIMETHICONE [Concomitant]
     Dosage: UNK
  7. MORPHINE [Concomitant]
     Dosage: UNK
     Route: 058
  8. ESOMEPRAZOLE SODIUM [Concomitant]
     Dosage: 40 MG, BID
  9. INSULIN HUMAN [Concomitant]
     Dosage: 100 UNK, PRN
     Route: 058
  10. VICTOZA [Suspect]
     Indication: TYPE 2 DIABETES MELLITUS
     Dosage: 1.8 MG, QD
     Route: 058
     Dates: start: 20110908, end: 20111217

REACTIONS (1)
  - PANCREATIC CARCINOMA [None]
